FAERS Safety Report 19475188 (Version 1)
Quarter: 2021Q2

REPORT INFORMATION
  Report Type: Spontaneous
  Country: DE (occurrence: DE)
  Receive Date: 20210630
  Receipt Date: 20210630
  Transmission Date: 20210717
  Serious: Yes (Life-Threatening, Other)
  Sender: FDA-Public Use
  Company Number: DE-HIKMA PHARMACEUTICALS USA INC.-DE-H14001-21-54744

PATIENT
  Age: 65 Year
  Sex: Female
  Weight: 95 kg

DRUGS (3)
  1. ACICLOVIR HIKMA [Suspect]
     Active Substance: ACYCLOVIR SODIUM
     Indication: ENCEPHALITIS
  2. ACICLOVIR HIKMA [Suspect]
     Active Substance: ACYCLOVIR SODIUM
     Indication: HERPES SIMPLEX
     Route: 042
  3. ACICLOVIR HIKMA [Suspect]
     Active Substance: ACYCLOVIR SODIUM
     Indication: COVID-19 PNEUMONIA

REACTIONS (5)
  - Overdose [Unknown]
  - Cough [Recovering/Resolving]
  - Drug-disease interaction [Unknown]
  - Post-injection delirium sedation syndrome [Recovering/Resolving]
  - Off label use [Unknown]

NARRATIVE: CASE EVENT DATE: 20210427
